FAERS Safety Report 8134785-8 (Version None)
Quarter: 2012Q1

REPORT INFORMATION
  Report Type: 
  Country: None (occurrence: None)
  Receive Date: 20120214
  Receipt Date: 20120207
  Transmission Date: 20120608
  Serious: No
  Sender: FDA-Public Use
  Company Number: US-PFIZER INC-2012035608

PATIENT
  Sex: Female

DRUGS (1)
  1. TYGACIL [Suspect]
     Indication: PNEUMONIA BACTERIAL
     Dosage: UNK

REACTIONS (1)
  - LIVER FUNCTION TEST ABNORMAL [None]
